FAERS Safety Report 9834590 (Version 1)
Quarter: 2014Q1

REPORT INFORMATION
  Report Type: Spontaneous
  Country: SG (occurrence: SG)
  Receive Date: 20140122
  Receipt Date: 20140122
  Transmission Date: 20141002
  Serious: Yes (Other)
  Sender: FDA-Public Use
  Company Number: SG-UCBSA-108928

PATIENT
  Age: 72 Year
  Sex: Female

DRUGS (3)
  1. ROTIGOTINE [Suspect]
     Indication: PARKINSON^S DISEASE
     Route: 062
  2. MADOPAR [Concomitant]
     Route: 048
  3. SELEGILINE [Concomitant]
     Route: 048

REACTIONS (2)
  - Urticaria [Recovered/Resolved]
  - Drug eruption [Recovered/Resolved]
